FAERS Safety Report 20995556 (Version 1)
Quarter: 2022Q2

REPORT INFORMATION
  Report Type: Spontaneous
  Country: US (occurrence: US)
  Receive Date: 20220623
  Receipt Date: 20220623
  Transmission Date: 20220721
  Serious: Yes (Other)
  Sender: FDA-Public Use
  Company Number: US-JNJFOC-20220629046

PATIENT
  Sex: Female

DRUGS (1)
  1. LISTERINE COOL MINT ANTISEPTIC [Suspect]
     Active Substance: EUCALYPTOL\MENTHOL\METHYL SALICYLATE\THYMOL
     Indication: Product used for unknown indication
     Dosage: TWO BOTTLES A DAY. STARTED SEVERAL MONTHS AGO
     Route: 048

REACTIONS (2)
  - Intentional product misuse [Unknown]
  - Hallucination, visual [Not Recovered/Not Resolved]
